FAERS Safety Report 7553464-9 (Version None)
Quarter: 2011Q2

REPORT INFORMATION
  Report Type: 
  Country: None (occurrence: None)
  Receive Date: 20110617
  Receipt Date: 20110531
  Transmission Date: 20111010
  Serious: Yes (Hospitalization, Other)
  Sender: FDA-Public Use
  Company Number: US-BAYER-201039105NA

PATIENT
  Age: 27 Year
  Sex: Female
  Weight: 63.492 kg

DRUGS (4)
  1. YAZ [Suspect]
     Dosage: 1 DF, QD
     Route: 048
     Dates: start: 20080101
  2. YASMIN [Suspect]
     Dosage: 1 DF, QD
     Route: 048
     Dates: start: 20010101, end: 20080101
  3. ZANTAC [Concomitant]
     Dosage: 1 DF, BID
     Route: 048
  4. FLUVACCIN [Concomitant]
     Dosage: 0.5 CC
     Route: 030
     Dates: start: 20021022

REACTIONS (3)
  - GALLBLADDER NON-FUNCTIONING [None]
  - CHOLECYSTITIS CHRONIC [None]
  - GALLBLADDER DISORDER [None]
